FAERS Safety Report 7164835-7 (Version None)
Quarter: 2010Q4

REPORT INFORMATION
  Report Type: 
  Country: None (occurrence: None)
  Receive Date: 20101215
  Receipt Date: 20101207
  Transmission Date: 20110411
  Serious: Yes (Other)
  Sender: FDA-Public Use
  Company Number: US-PFIZER INC-2010166558

PATIENT
  Sex: Male
  Weight: 142 kg

DRUGS (5)
  1. GEODON [Suspect]
     Indication: SCHIZOPHRENIA
     Dosage: 20 MG, 2X/DAY
     Route: 048
     Dates: start: 20100901
  2. OMEPRAZOLE [Concomitant]
     Indication: GASTROOESOPHAGEAL REFLUX DISEASE
     Dosage: UNK
  3. CARDIZEM [Concomitant]
     Indication: ATRIAL FIBRILLATION
     Dosage: UNK
  4. WARFARIN [Concomitant]
     Indication: ATRIAL FIBRILLATION
     Dosage: UNK
  5. DIGOXIN [Concomitant]
     Indication: ATRIAL FIBRILLATION
     Dosage: UNK

REACTIONS (2)
  - CHILLS [None]
  - HEART RATE INCREASED [None]
